FAERS Safety Report 8249373-2 (Version None)
Quarter: 2012Q1

REPORT INFORMATION
  Report Type: 
  Country: None (occurrence: None)
  Receive Date: 20120319
  Receipt Date: 20120313
  Transmission Date: 20120608
  Serious: Yes (Hospitalization)
  Sender: FDA-Public Use
  Company Number: 2012031615

PATIENT
  Age: 56 Year
  Sex: Female
  Weight: 51 kg

DRUGS (2)
  1. HIZENTRA [Suspect]
     Indication: IMMUNE TOLERANCE INDUCTION
     Dosage: (INTRAVENOUS (NOT OTHERWISE SPECIFIED)), (INTRAVENOUS (NOT OTHERWISE SPECIFIED))
     Route: 042
     Dates: start: 20120215
  2. HIZENTRA [Suspect]

REACTIONS (5)
  - CHEST PAIN [None]
  - TROPONIN INCREASED [None]
  - DYSPNOEA [None]
  - BLOOD PRESSURE INCREASED [None]
  - DIZZINESS [None]
